FAERS Safety Report 7513159-4 (Version None)
Quarter: 2011Q2

REPORT INFORMATION
  Report Type: 
  Country: None (occurrence: None)
  Receive Date: 20110531
  Receipt Date: 20110524
  Transmission Date: 20111010
  Serious: Yes (Hospitalization)
  Sender: FDA-Public Use
  Company Number: AU-MERCK-1105USA02160

PATIENT
  Age: 66 Year
  Sex: Female

DRUGS (9)
  1. BECONASE [Concomitant]
     Route: 065
  2. ASCORBIC ACID [Concomitant]
     Route: 065
  3. BOTOX [Concomitant]
     Indication: URINARY INCONTINENCE
     Route: 065
  4. PREDNISOLONE [Concomitant]
     Dosage: INTERMITTENTLY.
     Route: 065
  5. FOSAMAX [Suspect]
     Route: 048
  6. SYMBICORT [Concomitant]
     Route: 065
  7. COD LIVER OIL [Concomitant]
     Route: 065
  8. FOSAMAX PLUS D [Suspect]
     Route: 048
  9. PANADOL OSTEO [Concomitant]
     Route: 065

REACTIONS (1)
  - STRESS FRACTURE [None]
